FAERS Safety Report 25193707 (Version 1)
Quarter: 2025Q2

REPORT INFORMATION
  Report Type: Spontaneous
  Country: US (occurrence: US)
  Receive Date: 20250414
  Receipt Date: 20250414
  Transmission Date: 20250716
  Serious: No
  Sender: ABBVIE
  Company Number: US-ABBVIE-6222778

PATIENT
  Age: 44 Year
  Sex: Female

DRUGS (1)
  1. LILETTA [Suspect]
     Active Substance: LEVONORGESTREL
     Indication: Product used for unknown indication
     Route: 015
     Dates: start: 20250227

REACTIONS (4)
  - Complication of device insertion [Unknown]
  - Device expulsion [Unknown]
  - Uterine spasm [Unknown]
  - Uterine cervix stenosis [Unknown]

NARRATIVE: CASE EVENT DATE: 20250227
